FAERS Safety Report 10055553 (Version 1)
Quarter: 2014Q2

REPORT INFORMATION
  Report Type: Spontaneous
  Country: US (occurrence: None)
  Receive Date: 20140402
  Receipt Date: 20140402
  Transmission Date: 20141212
  Serious: Yes (Death)
  Sender: FDA-Public Use
  Company Number: None

PATIENT
  Age: 89 Year
  Sex: Male
  Weight: 114 kg

DRUGS (1)
  1. WARFARIN 2 MG [Suspect]
     Indication: AORTIC VALVE REPLACEMENT
     Dosage: VARIES
     Route: 048

REACTIONS (7)
  - Hiatus hernia [None]
  - Diverticulum [None]
  - Anaemia [None]
  - Haematochezia [None]
  - Post procedural complication [None]
  - Respiratory failure [None]
  - Aspiration [None]
